FAERS Safety Report 10141842 (Version 2)
Quarter: 2014Q3

REPORT INFORMATION
  Report Type: Other
  Country: IE (occurrence: IE)
  Receive Date: 20140429
  Receipt Date: 20140717
  Transmission Date: 20150326
  Serious: Yes (Hospitalization, Other)
  Sender: FDA-Public Use
  Company Number: IE-SHIRE-IE201401521

PATIENT
  Age: 8 Year
  Sex: Male
  Weight: 35.9 kg

DRUGS (8)
  1. PHENERGAN [Concomitant]
     Active Substance: PROMETHAZINE HYDROCHLORIDE
     Indication: SLEEP DISORDER
     Dosage: 5 MG, 1X/DAY:QD (NOCTE)
     Route: 065
  2. CALPOL [Concomitant]
     Active Substance: ACETAMINOPHEN
     Indication: PRODUCT USED FOR UNKNOWN INDICATION
     Dosage: UNK, UNKNOWN
     Route: 065
  3. ENALAPRIL [Concomitant]
     Active Substance: ENALAPRIL
     Indication: DILATATION VENTRICULAR
     Dosage: 10 MG, 2X/DAY:BID
     Route: 048
  4. RITALIN [Concomitant]
     Active Substance: METHYLPHENIDATE HYDROCHLORIDE
     Dosage: 10 MG, OTHER(PM + NOCTE)
     Route: 048
  5. ELAPRASE [Suspect]
     Active Substance: IDURSULFASE
     Dosage: 18 MG, 1X/WEEK
     Route: 041
     Dates: start: 20070823
  6. RITALIN [Concomitant]
     Active Substance: METHYLPHENIDATE HYDROCHLORIDE
     Indication: ATTENTION DEFICIT/HYPERACTIVITY DISORDER
     Dosage: 20 MG, UNKNOWN (MARE)
     Route: 048
  7. MELATONIN [Concomitant]
     Active Substance: MELATONIN
     Indication: SLEEP DISORDER
     Dosage: 6 MG, 1X/DAY:QD(NOCTE)
     Route: 065
  8. ELAPRASE [Suspect]
     Active Substance: IDURSULFASE
     Indication: MUCOPOLYSACCHARIDOSIS II
     Dosage: 18 MG, 1X/WEEK
     Route: 041
     Dates: start: 20130313

REACTIONS (6)
  - Emotional distress [Unknown]
  - Chills [Unknown]
  - Increased appetite [Not Recovered/Not Resolved]
  - Infusion related reaction [Unknown]
  - Crying [Unknown]
  - Cyanosis [Not Recovered/Not Resolved]

NARRATIVE: CASE EVENT DATE: 201312
